FAERS Safety Report 9739419 (Version 2)
Quarter: 2013Q4

REPORT INFORMATION
  Report Type: Spontaneous
  Country: US (occurrence: US)
  Receive Date: 20131209
  Receipt Date: 20131209
  Transmission Date: 20140711
  Serious: No
  Sender: FDA-Public Use
  Company Number: US-BRISTOL-MYERS SQUIBB COMPANY-18994145

PATIENT
  Sex: 0

DRUGS (6)
  1. IXEMPRA [Suspect]
     Indication: BREAST CANCER METASTATIC
     Dates: start: 20130516
  2. DEXAMETHASONE [Concomitant]
  3. ZANTAC [Concomitant]
     Route: 048
  4. ZANTAC [Concomitant]
     Route: 042
  5. BENADRYL [Concomitant]
  6. SCOPOLAMINE [Concomitant]
     Dosage: PATCH

REACTIONS (4)
  - Panic attack [Unknown]
  - Nausea [Unknown]
  - Vomiting [Unknown]
  - Fatigue [Unknown]
